FAERS Safety Report 8892076 (Version 1)
Quarter: 2012Q4

REPORT INFORMATION
  Report Type: 
  Country: US (occurrence: US)
  Receive Date: 20121107
  Receipt Date: 20121107
  Transmission Date: 20130627
  Serious: No
  Sender: FDA-Public Use
  Company Number: US-AMGEN-USASP2011055751

PATIENT
  Age: 53 Year
  Sex: Female

DRUGS (8)
  1. ENBREL [Suspect]
     Indication: PRODUCT USED FOR UNKNOWN INDICATION
     Dosage: 50 mg, qwk
     Route: 058
  2. FORTEO [Concomitant]
     Dosage: 600 mg, UNK
     Route: 058
  3. ZOCOR [Concomitant]
     Dosage: 10 mg, UNK
  4. CELEBREX [Concomitant]
     Dosage: 50 mg, UNK
  5. METHOTREXATE [Concomitant]
     Dosage: 2.5 mg, UNK
  6. FOLIC ACID [Concomitant]
     Dosage: 1 mg, UNK
  7. VITAMIN C                          /00008001/ [Concomitant]
     Dosage: 250 mg, UNK
  8. MULTIVITAMIN                       /00097801/ [Concomitant]
     Dosage: UNK IU/g, UNK

REACTIONS (2)
  - Pain in extremity [Unknown]
  - Fatigue [Unknown]
